FAERS Safety Report 15940368 (Version 1)
Quarter: 2019Q1

REPORT INFORMATION
  Report Type: Spontaneous
  Country: None (occurrence: US)
  Receive Date: 20190208
  Receipt Date: 20190208
  Transmission Date: 20190417
  Serious: No
  Sender: FDA-Public Use
  Company Number: NXG-15-020

PATIENT
  Age: 36 Year
  Sex: Female

DRUGS (1)
  1. CHENODAL [Suspect]
     Active Substance: CHENODIOL
     Route: 048

REACTIONS (3)
  - Premature delivery [Unknown]
  - Induced labour [None]
  - Exposure during pregnancy [None]

NARRATIVE: CASE EVENT DATE: 20130711
